FAERS Safety Report 7415355-3 (Version None)
Quarter: 2011Q2

REPORT INFORMATION
  Report Type: 
  Country: None (occurrence: None)
  Receive Date: 20110414
  Receipt Date: 20110407
  Transmission Date: 20111010
  Serious: Yes (Other)
  Sender: FDA-Public Use
  Company Number: A0921174A

PATIENT
  Age: 71 Year
  Sex: Female

DRUGS (3)
  1. PROMACTA [Suspect]
     Indication: THROMBOCYTOPENIA
     Dosage: 50MG PER DAY
     Dates: start: 20100318, end: 20101123
  2. CORTICOSTEROIDS [Concomitant]
  3. RITUXIMAB [Concomitant]

REACTIONS (5)
  - DRUG INEFFECTIVE [None]
  - HAEMATOLOGICAL MALIGNANCY [None]
  - LYMPHOMA [None]
  - DISEASE PROGRESSION [None]
  - PLASMACYTOMA [None]
